FAERS Safety Report 8406551-7 (Version None)
Quarter: 2012Q2

REPORT INFORMATION
  Report Type: 
  Country: None (occurrence: None)
  Receive Date: 20120604
  Receipt Date: 20120531
  Transmission Date: 20120825
  Serious: Yes (Other)
  Sender: FDA-Public Use
  Company Number: PT-BAYER-2012-012850

PATIENT
  Age: 71 Year
  Sex: Female

DRUGS (14)
  1. TRENTAL [Concomitant]
  2. ZOLPIDEM [Concomitant]
  3. BETASERON [Suspect]
     Dosage: 250 ?G, QOD
     Route: 058
     Dates: start: 20120214
  4. IRBESARTAN + HYDROCHLOROTHIAZIDE [Concomitant]
  5. LEXOTAN [Concomitant]
  6. DITROPAN [Concomitant]
  7. AMITRIPTYLINE HCL [Concomitant]
  8. BETASERON [Suspect]
     Indication: SECONDARY PROGRESSIVE MULTIPLE SCLEROSIS
     Dosage: 250 MCG/ML, QOD
     Route: 058
     Dates: start: 19990301, end: 20120203
  9. TERAZOSIN HCL [Suspect]
     Dosage: UNK
     Dates: start: 20111001, end: 20120203
  10. DAFLON [DIOSMIN] [Concomitant]
  11. DAFLON [DIOSMIN,HESPERIDIN] [Concomitant]
  12. IRON [Concomitant]
  13. PRAVASTATIN [Concomitant]
  14. FURADANTIN [Concomitant]

REACTIONS (5)
  - PANCYTOPENIA [None]
  - HYPOTHERMIA [None]
  - FATIGUE [None]
  - TREMOR [None]
  - THROMBOCYTOPENIA [None]
